FAERS Safety Report 25129603 (Version 1)
Quarter: 2025Q1

REPORT INFORMATION
  Report Type: Spontaneous
  Country: US (occurrence: None)
  Receive Date: 20250325
  Receipt Date: 20250325
  Transmission Date: 20250408
  Serious: Yes (Hospitalization, Other)
  Sender: FDA-CTU
  Company Number: None

PATIENT
  Age: 72 Year
  Sex: Female

DRUGS (2)
  1. LINEZOLID [Suspect]
     Active Substance: LINEZOLID
  2. BUPROPION [Suspect]
     Active Substance: BUPROPION

REACTIONS (4)
  - Bipolar I disorder [None]
  - Hallucination [None]
  - Hypersensitivity [None]
  - Drug interaction [None]

NARRATIVE: CASE EVENT DATE: 20250223
